FAERS Safety Report 5976339-5 (Version None)
Quarter: 2008Q4

REPORT INFORMATION
  Report Type: 
  Country: None (occurrence: None)
  Receive Date: 20081202
  Receipt Date: 20081120
  Transmission Date: 20090506
  Serious: No
  Sender: FDA-Public Use
  Company Number: US-B.I. PHARMACEUTICALS,INC./RIDGEFIELD-2008-BP-16480BP

PATIENT
  Sex: Female

DRUGS (10)
  1. SPIRIVA [Suspect]
     Indication: EMPHYSEMA
     Dosage: 18MCG
     Route: 055
     Dates: start: 20080411, end: 20081020
  2. SPIRIVA [Suspect]
     Indication: CHRONIC OBSTRUCTIVE PULMONARY DISEASE
  3. SPIRIVA [Suspect]
     Indication: ASTHMA
  4. SINGULAIR [Concomitant]
  5. QVAR 40 [Concomitant]
  6. DILTIAZEM [Concomitant]
     Indication: HYPERTENSION
  7. PREDNISONE TAB [Concomitant]
     Dates: start: 19730101
  8. SIMVASTATIN [Concomitant]
     Indication: BLOOD CHOLESTEROL INCREASED
  9. SALSILATE WITH ALBUTEROL [Concomitant]
  10. ALBUTEROL/SALINE IN NEB [Concomitant]

REACTIONS (6)
  - BRONCHIAL IRRITATION [None]
  - COUGH [None]
  - DRUG INEFFECTIVE [None]
  - DRY THROAT [None]
  - DYSPNOEA [None]
  - RESPIRATORY TRACT IRRITATION [None]
